FAERS Safety Report 11887958 (Version 1)
Quarter: 2016Q1

REPORT INFORMATION
  Report Type: Spontaneous
  Country: US (occurrence: None)
  Receive Date: 20160104
  Receipt Date: 20160104
  Transmission Date: 20160526
  Serious: No
  Sender: FDA-Public Use
  Company Number: None

PATIENT
  Age: 66 Year
  Sex: Male
  Weight: 102.51 kg

DRUGS (5)
  1. LOSARTAN. [Concomitant]
     Active Substance: LOSARTAN
  2. METFORMIN [Concomitant]
     Active Substance: METFORMIN HYDROCHLORIDE
  3. GLYMIPERIDE [Concomitant]
  4. NIACIN 500MG 500MG TIME RELEASED REXALL SUNDOWN [Suspect]
     Active Substance: NIACIN
     Indication: LIPIDS INCREASED
  5. B COMPLEX VITAMIN [Concomitant]

REACTIONS (2)
  - Drug effect increased [None]
  - Flushing [None]

NARRATIVE: CASE EVENT DATE: 20151231
